FAERS Safety Report 10769327 (Version 5)
Quarter: 2016Q3

REPORT INFORMATION
  Report Type: Report from Study
  Country: US (occurrence: US)
  Receive Date: 20150206
  Receipt Date: 20160708
  Transmission Date: 20161109
  Serious: Yes (Other)
  Sender: FDA-Public Use
  Company Number: US-UCBSA-2014010925

PATIENT
  Age: 87 Year
  Sex: Female
  Weight: 56 kg

DRUGS (11)
  1. MULTIVITAMIN [Concomitant]
     Active Substance: VITAMINS
     Indication: SUPPLEMENTATION THERAPY
     Dosage: UNK
     Route: 048
  2. SINEMET [Concomitant]
     Active Substance: CARBIDOPA\LEVODOPA
     Indication: PARKINSON^S DISEASE
     Route: 048
  3. VITAMIN C [Concomitant]
     Active Substance: ASCORBIC ACID
     Indication: SUPPLEMENTATION THERAPY
     Dosage: 250 MG, DAILY
     Route: 048
  4. ZOLOFT [Concomitant]
     Active Substance: SERTRALINE HYDROCHLORIDE
     Indication: ANXIETY
     Dosage: 50 MG, DAILY
     Route: 048
  5. VITAMIN D3 [Concomitant]
     Active Substance: CHOLECALCIFEROL
     Indication: SUPPLEMENTATION THERAPY
     Dosage: UNK
     Route: 048
  6. CARBIDOPA/LEVODOPA [Concomitant]
     Active Substance: CARBIDOPA\LEVODOPA
     Indication: PARKINSON^S DISEASE
     Dosage: 25/100MG,2 TABS EVERY 3 HOURS FOR A TOTAL DOSE OF 12 TABS DAILY
  7. ROTIGOTINE [Suspect]
     Active Substance: ROTIGOTINE
     Indication: PARKINSON^S DISEASE
     Dosage: 6 MG, ONCE DAILY (QD) EXPIRY DATE-08/07/2016
     Route: 062
     Dates: start: 2013
  8. PANTOPRAZOLE [Concomitant]
     Active Substance: PANTOPRAZOLE SODIUM
     Indication: PROPHYLAXIS
     Dosage: UNK
     Route: 048
     Dates: start: 201311
  9. ROTIGOTINE [Suspect]
     Active Substance: ROTIGOTINE
     Indication: RESTLESS LEGS SYNDROME
     Dosage: 4 MG, ONCE DAILY (QD)
     Route: 062
     Dates: start: 2012, end: 2013
  10. CARBIDOPA/LEVODOPA [Concomitant]
     Active Substance: CARBIDOPA\LEVODOPA
     Indication: PARKINSON^S DISEASE
     Dosage: 50/200MG, 1 AT HS, ROUTE TD
  11. XANAX [Concomitant]
     Active Substance: ALPRAZOLAM
     Indication: ANXIETY
     Dosage: 0.25 MG DAILY
     Route: 048

REACTIONS (17)
  - Hallucination, visual [Recovered/Resolved]
  - Herpes zoster [Recovering/Resolving]
  - Emotional disorder [Unknown]
  - Hypersensitivity [Not Recovered/Not Resolved]
  - Neoplasm malignant [Not Recovered/Not Resolved]
  - Application site erythema [Recovering/Resolving]
  - Pruritus generalised [Not Recovered/Not Resolved]
  - Application site pain [Not Recovered/Not Resolved]
  - Generalised erythema [Not Recovered/Not Resolved]
  - Dizziness [Not Recovered/Not Resolved]
  - Application site pruritus [Recovering/Resolving]
  - Skin irritation [Not Recovered/Not Resolved]
  - Product adhesion issue [Unknown]
  - Somnolence [Not Recovered/Not Resolved]
  - Drug ineffective [Unknown]
  - Precancerous cells present [Not Recovered/Not Resolved]
  - Application site reaction [Recovering/Resolving]

NARRATIVE: CASE EVENT DATE: 2012
